FAERS Safety Report 7519087-2 (Version None)
Quarter: 2011Q2

REPORT INFORMATION
  Report Type: 
  Country: None (occurrence: None)
  Receive Date: 20110512
  Receipt Date: 20110209
  Transmission Date: 20111010
  Serious: Yes (Other)
  Sender: FDA-Public Use
  Company Number: 1000018281

PATIENT
  Age: 53 Year
  Sex: Female

DRUGS (10)
  1. SAVELLA [Suspect]
     Indication: FIBROMYALGIA
     Dosage: 100 MG (50 MG, 2 IN 1 D)
  2. LUNESTA (ESZOPICLONE) (ESZOPICLONE) [Concomitant]
  3. FIORICET (AXOTAL) (AXOTAL) [Concomitant]
  4. PRILOSEC (OMEPRAZOLE) (OMEPRAZOLE) [Concomitant]
  5. SOMA (CARISOPRODOL) (CARISOPRODOL) [Concomitant]
  6. SAVELLA [Suspect]
     Indication: FIBROMYALGIA
     Dosage: 12.5 MG (12.5 MG, 1 IN 1 D); 25 MG (12.5 MG, 2 IN 1 D); 50 MG (25 MG, 2 IN 1 D)
  7. EFFEXOR XR [Concomitant]
  8. XANAX [Concomitant]
  9. ZEGERID (OMEPRAZOLE/SODIUM BICARBONATE) (OMEPRAZOLE/SODIUM BICARBONATE [Concomitant]
  10. FEMHRT (ANOVLAR) (ANOVLAR) [Concomitant]

REACTIONS (1)
  - SUICIDAL IDEATION [None]
